FAERS Safety Report 8053346-2 (Version None)
Quarter: 2012Q1

REPORT INFORMATION
  Report Type: 
  Country: None (occurrence: None)
  Receive Date: 20120118
  Receipt Date: 20120110
  Transmission Date: 20120608
  Serious: Yes (Other)
  Sender: FDA-Public Use
  Company Number: US-B.I. PHARMACEUTICALS,INC./RIDGEFIELD-2012-BP-00798YA

PATIENT
  Sex: Male
  Weight: 81.63 kg

DRUGS (4)
  1. PRILOSEC [Concomitant]
     Indication: HYPERCHLORHYDRIA
     Dosage: 20 MG
     Route: 048
  2. TAMSULOSIN HCL [Suspect]
     Indication: PROSTATOMEGALY
     Route: 048
  3. CELEBREX [Suspect]
     Indication: LIMB DISCOMFORT
     Route: 048
  4. AVODART [Concomitant]
     Indication: PROSTATOMEGALY
     Dosage: 0.5 MG
     Route: 048
     Dates: end: 20110101

REACTIONS (3)
  - DRUG INEFFECTIVE [None]
  - PROSTATE CANCER [None]
  - THERAPEUTIC RESPONSE UNEXPECTED [None]
